FAERS Safety Report 19035930 (Version 2)
Quarter: 2021Q2

REPORT INFORMATION
  Report Type: Spontaneous
  Country: US (occurrence: US)
  Receive Date: 20210321
  Receipt Date: 20210512
  Transmission Date: 20210717
  Serious: No
  Sender: FDA-Public Use
  Company Number: US-ASTRAZENECA-2021A122815

PATIENT
  Sex: Female
  Weight: 61.2 kg

DRUGS (3)
  1. CETIRIZINE [Concomitant]
     Active Substance: CETIRIZINE HYDROCHLORIDE
     Indication: HYPERSENSITIVITY
     Dosage: 10MEQ/L DAILY
     Route: 048
     Dates: start: 2020
  2. SYMBICORT [Suspect]
     Active Substance: BUDESONIDE\FORMOTEROL FUMARATE DIHYDRATE
     Indication: COUGH
     Dosage: 160/4.5 MCGS TWO PUFFS TWO TIMES A DAY
     Route: 055
     Dates: start: 20210225
  3. IPRATROPIUM NASAL SPRAY [Concomitant]
     Active Substance: IPRATROPIUM
     Indication: HYPERSENSITIVITY
     Route: 045
     Dates: start: 2020

REACTIONS (6)
  - Product use issue [Unknown]
  - Drug delivery system malfunction [Unknown]
  - Dyspnoea [Unknown]
  - Device malfunction [Unknown]
  - Back pain [Unknown]
  - Wrong technique in device usage process [Unknown]
